FAERS Safety Report 6555467-X (Version None)
Quarter: 2010Q1

REPORT INFORMATION
  Report Type: 
  Country: None (occurrence: None)
  Receive Date: 20100128
  Receipt Date: 20100114
  Transmission Date: 20100710
  Serious: Yes (Other)
  Sender: FDA-Public Use
  Company Number: US-BRISTOL-MYERS SQUIBB COMPANY-14919732

PATIENT
  Age: 53 Year
  Sex: Male

DRUGS (2)
  1. ONGLYZA [Suspect]
     Indication: DIABETES MELLITUS
     Route: 048
     Dates: start: 20091120
  2. METFORMIN HCL [Suspect]

REACTIONS (2)
  - ANGIOEDEMA [None]
  - URTICARIA [None]
